FAERS Safety Report 8162553-X (Version None)
Quarter: 2012Q1

REPORT INFORMATION
  Report Type: 
  Country: None (occurrence: None)
  Receive Date: 20120103
  Receipt Date: 20111118
  Transmission Date: 20120608
  Serious: No
  Sender: FDA-Public Use
  Company Number: AE-2011-003692

PATIENT
  Age: 53 Year
  Sex: Male
  Weight: 77.5651 kg

DRUGS (3)
  1. INCIVEK [Suspect]
     Dosage: 2250 MG (750 MG,  EVERY 7-9 HOURS),ORAL
     Route: 048
     Dates: start: 20111102
  2. PEGASYS [Concomitant]
  3. RIBAVIRIN [Concomitant]

REACTIONS (6)
  - IRRITABILITY [None]
  - DIARRHOEA [None]
  - NAUSEA [None]
  - HEADACHE [None]
  - MYALGIA [None]
  - HAEMORRHOIDS [None]
